FAERS Safety Report 7831778-2 (Version None)
Quarter: 2011Q4

REPORT INFORMATION
  Report Type: 
  Country: None (occurrence: None)
  Receive Date: 20111021
  Receipt Date: 20111014
  Transmission Date: 20120403
  Serious: Yes (Life-Threatening, Other)
  Sender: FDA-Public Use
  Company Number: US-TYCO HEALTHCARE/MALLINCKRODT-T201102085

PATIENT
  Age: 3 Year

DRUGS (1)
  1. METHADOSE [Suspect]
     Dosage: UNK
     Route: 048

REACTIONS (8)
  - TOXIC ENCEPHALOPATHY [None]
  - ISCHAEMIA [None]
  - VISUAL IMPAIRMENT [None]
  - TOXICITY TO VARIOUS AGENTS [None]
  - ACCIDENTAL EXPOSURE [None]
  - DYSTONIA [None]
  - SPASTIC DIPLEGIA [None]
  - HYPOXIA [None]
